FAERS Safety Report 8787063 (Version 2)
Quarter: 2013Q3

REPORT INFORMATION
  Report Type: Spontaneous
  Country: US (occurrence: US)
  Receive Date: 20120914
  Receipt Date: 20130816
  Transmission Date: 20140515
  Serious: Yes (Hospitalization)
  Sender: FDA-Public Use
  Company Number: US-PFIZER INC-2012224433

PATIENT
  Age: 66 Year
  Sex: Female
  Weight: 118 kg

DRUGS (16)
  1. CELEBREX [Suspect]
     Indication: RHEUMATOID ARTHRITIS
     Dosage: 200 MG, 2X/DAY
     Route: 048
     Dates: start: 200307
  2. CELEBREX [Suspect]
     Dosage: 200 MG, 1X/DAY
     Route: 048
  3. CELEBREX [Suspect]
     Dosage: 200 MG, 1X/DAY
     Route: 048
     Dates: start: 2010
  4. COUMADIN [Concomitant]
     Indication: THROMBOSIS
     Dosage: 4 MG, 1X/DAY
     Dates: start: 200210
  5. COUMADIN [Concomitant]
     Indication: ATRIAL FIBRILLATION
     Dosage: THREE AND HALF 1MG TABLETS, 1X/DAY
     Route: 048
  6. ATENOLOL [Concomitant]
     Dosage: 50MG DAILY
  7. PREDNISONE [Concomitant]
     Indication: RHEUMATOID ARTHRITIS
     Dosage: 5MG DAILY
  8. MORPHINE SULFATE [Concomitant]
     Indication: RHEUMATOID ARTHRITIS
     Dosage: 60 MG, 2X/DAY
  9. FOLIC ACID [Concomitant]
     Indication: RHEUMATOID ARTHRITIS
     Dosage: 1 MG, 1X/DAY
     Route: 048
  10. AMITRIPTYLINE [Concomitant]
     Indication: INSOMNIA
     Dosage: 10 MG DAILY
  11. ALLOPURINOL [Concomitant]
     Indication: RESTLESS LEGS SYNDROME
     Dosage: 0.5 MG DAILY
  12. AMIODARONE HYDROCHLORIDE [Concomitant]
     Dosage: 400 MG, 2X/DAY
  13. LEUCOVORIN [Concomitant]
     Indication: RHEUMATOID ARTHRITIS
     Dosage: 15 MG (THREE 5MG TABLET), WEEKLY
     Route: 048
  14. METHOTREXATE [Concomitant]
     Indication: RHEUMATOID ARTHRITIS
     Dosage: 17.5 MG (SEVEN 2.5MG TABLETS) , WEEKLY
     Route: 048
  15. DILTIAZEM [Concomitant]
     Dosage: 180 MG (TWO 90MG CAPSULES) DAILY
     Route: 048
  16. FUROSEMIDE [Concomitant]
     Indication: HYPERTENSION
     Dosage: 20MG DAILY

REACTIONS (9)
  - Sepsis [Recovering/Resolving]
  - Cellulitis [Recovering/Resolving]
  - Pyrexia [Unknown]
  - Spinal column stenosis [Recovering/Resolving]
  - Local swelling [Unknown]
  - Musculoskeletal stiffness [Unknown]
  - Nasopharyngitis [Recovering/Resolving]
  - Oropharyngeal pain [Recovering/Resolving]
  - Intentional drug misuse [Unknown]
